FAERS Safety Report 25728029 (Version 1)
Quarter: 2025Q3

REPORT INFORMATION
  Report Type: Spontaneous
  Country: US (occurrence: None)
  Receive Date: 20250826
  Receipt Date: 20250826
  Transmission Date: 20251021
  Serious: Yes (Other)
  Sender: FDA-CTU
  Company Number: None

PATIENT
  Age: 36 Year
  Sex: Female

DRUGS (1)
  1. XOLAIR [Suspect]
     Active Substance: OMALIZUMAB
     Indication: Asthma
     Dosage: OTHER QUANTITY : 300MG/2ML;?FREQUENCY : MONTHLY;?

REACTIONS (12)
  - Therapy change [None]
  - Cold sweat [None]
  - Dyspnoea [None]
  - Anxiety [None]
  - Tremor [None]
  - Panic attack [None]
  - Nausea [None]
  - Headache [None]
  - Dizziness [None]
  - Pruritus [None]
  - Paraesthesia [None]
  - Self-destructive behaviour [None]
